FAERS Safety Report 16683755 (Version 2)
Quarter: 2019Q3

REPORT INFORMATION
  Report Type: Spontaneous
  Country: JP (occurrence: JP)
  Receive Date: 20190808
  Receipt Date: 20190919
  Transmission Date: 20191004
  Serious: Yes (Hospitalization)
  Sender: FDA-Public Use
  Company Number: JP-PFIZER INC-2019333101

PATIENT
  Age: 82 Year
  Sex: Female

DRUGS (11)
  1. VALSARTAN. [Concomitant]
     Active Substance: VALSARTAN
     Dosage: UNK
  2. UNASYN [Suspect]
     Active Substance: AMPICILLIN SODIUM\SULBACTAM SODIUM
     Indication: PNEUMONIA
     Dosage: UNK
     Route: 041
     Dates: start: 20190419, end: 20190422
  3. MEILAX [Concomitant]
     Active Substance: ETHYL LOFLAZEPATE
     Dosage: UNK
  4. MAGNESIUM OXIDE. [Concomitant]
     Active Substance: MAGNESIUM OXIDE
     Dosage: UNK
  5. CEFTRIAXONE SODIUM. [Suspect]
     Active Substance: CEFTRIAXONE SODIUM
     Indication: PNEUMONIA
     Dosage: UNK
     Route: 041
     Dates: start: 20190422, end: 20190424
  6. ENSURE H [Concomitant]
     Dosage: UNK
  7. LANSOPRAZOLE. [Concomitant]
     Active Substance: LANSOPRAZOLE
     Dosage: UNK
  8. LOXONIN [Concomitant]
     Active Substance: LOXOPROFEN SODIUM
     Dosage: UNK
  9. PROSTANDIN [ALPROSTADIL ALFADEX] [Concomitant]
     Dosage: UNK
  10. AMLODIPINE [Concomitant]
     Active Substance: AMLODIPINE BESYLATE
     Dosage: UNK
  11. CALONAL [Concomitant]
     Active Substance: ACETAMINOPHEN
     Dosage: UNK

REACTIONS (2)
  - Pyrexia [Recovered/Resolved]
  - Rash [Recovering/Resolving]

NARRATIVE: CASE EVENT DATE: 201904
